FAERS Safety Report 4832999-3 (Version None)
Quarter: 2005Q4

REPORT INFORMATION
  Report Type: 
  Country: None (occurrence: None)
  Receive Date: 20051121
  Receipt Date: 20051109
  Transmission Date: 20060501
  Serious: Yes (Death, Other)
  Sender: FDA-Public Use
  Company Number: PHBS2005AU16884

PATIENT
  Age: 63 Year
  Sex: Male

DRUGS (1)
  1. IMATINIB [Suspect]
     Indication: CHRONIC MYELOID LEUKAEMIA
     Dosage: 400 MG/D
     Route: 065
     Dates: start: 20030301

REACTIONS (4)
  - CHROMOSOME ANALYSIS ABNORMAL [None]
  - FUNGAL SEPSIS [None]
  - LEUKAEMIA CUTIS [None]
  - RASH MACULO-PAPULAR [None]
